FAERS Safety Report 4286234-8 (Version None)
Quarter: 2004Q1

REPORT INFORMATION
  Report Type: 
  Country: None (occurrence: None)
  Receive Date: 20040202
  Receipt Date: 20040122
  Transmission Date: 20041129
  Serious: Yes (Hospitalization)
  Sender: FDA-Public Use
  Company Number: 200410068FR

PATIENT
  Age: 54 Year
  Sex: Male

DRUGS (4)
  1. GLIBENCLAMIDE (DOANIL) TABLETS [Suspect]
     Indication: DIABETES MELLITUS NON-INSULIN-DEPENDENT
     Dosage: 15 MG/DAY PO
     Route: 048
  2. PREDNISOLONE TAB [Suspect]
     Dosage: 40 MG/DAY PO
     Route: 048
  3. TEMOZOLOMIDE CAPSULES [Suspect]
     Indication: GLIOBLASTOMA
     Dosage: 350 MG/DAY PO
     Route: 048
     Dates: start: 20031103, end: 20031108
  4. OMPERAZOLE (MOPRAL) GASTRO-RESISTANT CAPSULES [Suspect]
     Dosage: 20 MG QD PO
     Route: 048
     Dates: start: 20031103

REACTIONS (6)
  - CONVULSION [None]
  - HYPERGLYCAEMIA [None]
  - HYPEROSMOLAR STATE [None]
  - HYPONATRAEMIA [None]
  - LOSS OF CONSCIOUSNESS [None]
  - MYOCLONUS [None]
